FAERS Safety Report 12739549 (Version 2)
Quarter: 2016Q4

REPORT INFORMATION
  Report Type: Report from Study
  Country: AU (occurrence: AU)
  Receive Date: 20160913
  Receipt Date: 20161128
  Transmission Date: 20170207
  Serious: Yes (Hospitalization, Other)
  Sender: FDA-Public Use
  Company Number: PHHY2015AU071673

PATIENT
  Age: 72 Year
  Sex: Male

DRUGS (1)
  1. SANDOSTATIN LAR DEPOT [Suspect]
     Active Substance: OCTREOTIDE ACETATE
     Indication: NEUROENDOCRINE TUMOUR
     Dosage: 30 MG, UNK
     Route: 030

REACTIONS (9)
  - Skin lesion [Unknown]
  - Staphylococcal infection [Not Recovered/Not Resolved]
  - Fatigue [Unknown]
  - Vomiting [Recovered/Resolved]
  - Second primary malignancy [Unknown]
  - Malaise [Recovered/Resolved]
  - Nausea [Recovered/Resolved]
  - Basal cell carcinoma [Unknown]
  - Nausea [Not Recovered/Not Resolved]

NARRATIVE: CASE EVENT DATE: 20150610
